FAERS Safety Report 18479539 (Version 1)
Quarter: 2020Q4

REPORT INFORMATION
  Report Type: Spontaneous
  Country: US (occurrence: US)
  Receive Date: 20201106
  Receipt Date: 20201106
  Transmission Date: 20210114
  Serious: Yes (Death)
  Sender: FDA-Public Use
  Company Number: None

PATIENT
  Age: 99 Year
  Sex: Female
  Weight: 49.05 kg

DRUGS (6)
  1. TYLENOL WITH CODEINE #3 300-30MG [Concomitant]
  2. AMLODIPINE [Concomitant]
     Active Substance: AMLODIPINE BESYLATE
  3. ACETAMINOPHEN 650MG [Concomitant]
  4. ASPIRIN 325 MG [Concomitant]
     Active Substance: ASPIRIN
  5. LEVOTHYROXINE 50 MCG [Concomitant]
     Active Substance: LEVOTHYROXINE
  6. CAPECITABINE. [Suspect]
     Active Substance: CAPECITABINE
     Indication: RECTAL CANCER
     Route: 048
     Dates: start: 20200812

REACTIONS (1)
  - Death [None]

NARRATIVE: CASE EVENT DATE: 20201102
